FAERS Safety Report 14474485 (Version 1)
Quarter: 2018Q1

REPORT INFORMATION
  Report Type: Spontaneous
  Country: US (occurrence: US)
  Receive Date: 20180131
  Receipt Date: 20180131
  Transmission Date: 20180509
  Serious: Yes (Hospitalization)
  Sender: FDA-Public Use
  Company Number: None

PATIENT
  Age: 63 Year
  Sex: Male
  Weight: 139.16 kg

DRUGS (2)
  1. DICLOFENAC [Suspect]
     Active Substance: DICLOFENAC
     Indication: ARTHRALGIA
     Route: 048
     Dates: start: 20171124, end: 20171203
  2. ASPIRIN. [Suspect]
     Active Substance: ASPIRIN
     Route: 048
     Dates: start: 20121210

REACTIONS (7)
  - Haemorrhage [None]
  - Haemorrhoids [None]
  - Diarrhoea [None]
  - Melaena [None]
  - Barrett^s oesophagus [None]
  - Abdominal pain upper [None]
  - Gastritis erosive [None]

NARRATIVE: CASE EVENT DATE: 20171201
